FAERS Safety Report 10476016 (Version 1)
Quarter: 2014Q3

REPORT INFORMATION
  Report Type: Spontaneous
  Country: US (occurrence: US)
  Receive Date: 20140925
  Receipt Date: 20140925
  Transmission Date: 20150326
  Serious: Yes (Other)
  Sender: FDA-Public Use
  Company Number: CHPA2014US012717

PATIENT
  Age: 46 Year
  Sex: Male

DRUGS (3)
  1. THERAFLU COLD AND COUGH [Suspect]
     Active Substance: DEXTROMETHORPHAN\PHENIRAMINE\PHENYLEPHRINE
     Indication: NASOPHARYNGITIS
     Dosage: 1 DF, BID
     Route: 065
  2. THERAFLU MULTI SYMPTOM SEVERE COLD [Suspect]
     Active Substance: ACETAMINOPHEN\DEXTROMETHORPHAN HYDROBROMIDE\PHENYLEPHRINE HYDROCHLORIDE
     Indication: PAIN
  3. THERAFLU MULTI SYMPTOM SEVERE COLD [Suspect]
     Active Substance: ACETAMINOPHEN\DEXTROMETHORPHAN HYDROBROMIDE\PHENYLEPHRINE HYDROCHLORIDE
     Indication: INFLUENZA
     Dosage: 1 DF, BID
     Route: 048
     Dates: end: 2013

REACTIONS (1)
  - Urinary tract infection [Not Recovered/Not Resolved]

NARRATIVE: CASE EVENT DATE: 201409
